FAERS Safety Report 5506792-2 (Version None)
Quarter: 2007Q4

REPORT INFORMATION
  Report Type: 
  Country: None (occurrence: None)
  Receive Date: 20071105
  Receipt Date: 20071025
  Transmission Date: 20080405
  Serious: Yes (Hospitalization, Other)
  Sender: FDA-Public Use
  Company Number: US-PFIZER INC-2007090927

PATIENT
  Sex: Male
  Weight: 77.1 kg

DRUGS (9)
  1. ALPRAZOLAM [Suspect]
     Indication: ANXIETY
     Dosage: DAILY DOSE:9MG
  2. ALPRAZOLAM [Suspect]
     Indication: DEPRESSION
  3. ALPRAZOLAM [Suspect]
     Indication: POST-TRAUMATIC STRESS DISORDER
  4. MS CONTIN [Concomitant]
  5. PERCOCET [Concomitant]
  6. HYDROCODONE [Concomitant]
  7. ANTIDEPRESSANTS [Concomitant]
  8. ALBUTEROL [Concomitant]
  9. ALBUTEROL [Concomitant]

REACTIONS (3)
  - ASTHENIA [None]
  - PNEUMONIA [None]
  - THROMBOSIS [None]
